FAERS Safety Report 5973822-3 (Version None)
Quarter: 2008Q4

REPORT INFORMATION
  Report Type: 
  Country: None (occurrence: None)
  Receive Date: 20081201
  Receipt Date: 20081119
  Transmission Date: 20090506
  Serious: Yes (Death, Life-Threatening, Hospitalization)
  Sender: FDA-Public Use
  Company Number: FR-ROCHE-597999

PATIENT
  Age: 61 Year
  Sex: Male

DRUGS (4)
  1. ROCEPHIN [Suspect]
     Indication: DRUG USE FOR UNKNOWN INDICATION
     Route: 065
     Dates: start: 20080603
  2. FLAGYL [Suspect]
     Indication: DRUG USE FOR UNKNOWN INDICATION
     Route: 065
     Dates: start: 20080603
  3. NEURONTIN [Suspect]
     Route: 048
     Dates: start: 20080401
  4. REVLIMID [Suspect]
     Route: 048
     Dates: start: 20080519

REACTIONS (1)
  - TOXIC EPIDERMAL NECROLYSIS [None]
